FAERS Safety Report 23531720 (Version 4)
Quarter: 2024Q2

REPORT INFORMATION
  Report Type: Report from Study
  Country: US (occurrence: US)
  Receive Date: 20240216
  Receipt Date: 20240425
  Transmission Date: 20240715
  Serious: Yes (Other)
  Sender: FDA-Public Use
  Company Number: US-ABBVIE-5417670

PATIENT
  Sex: Male
  Weight: 72.574 kg

DRUGS (2)
  1. RINVOQ [Suspect]
     Active Substance: UPADACITINIB
     Indication: Dermatitis atopic
     Dosage: LAST ADMIN DATE- 2023
     Route: 048
     Dates: start: 20230506
  2. RINVOQ [Suspect]
     Active Substance: UPADACITINIB
     Indication: Dermatitis atopic
     Route: 048
     Dates: start: 20230623

REACTIONS (7)
  - Contusion [Recovered/Resolved]
  - Skin haemorrhage [Recovering/Resolving]
  - Muscular weakness [Recovering/Resolving]
  - Blood cholesterol increased [Unknown]
  - Eczema [Unknown]
  - Peripheral artery occlusion [Unknown]
  - Intermittent claudication [Unknown]

NARRATIVE: CASE EVENT DATE: 20230101
